FAERS Safety Report 8299026-X (Version None)
Quarter: 2012Q2

REPORT INFORMATION
  Report Type: 
  Country: None (occurrence: None)
  Receive Date: 20120419
  Receipt Date: 20120416
  Transmission Date: 20120825
  Serious: Yes (Disabling, Other)
  Sender: FDA-Public Use
  Company Number: US-PFIZER INC-2012094392

PATIENT
  Sex: Male
  Weight: 93 kg

DRUGS (7)
  1. AMLODIPINE [Concomitant]
     Dosage: 10 MG, UNK
  2. FAMOTIDINE [Concomitant]
     Dosage: 20 MG, UNK
  3. SPIRONOLACTONE [Concomitant]
     Dosage: 25 MG, UNK
  4. ACETYLSALICYLIC ACID [Concomitant]
     Dosage: UNK
  5. LIPITOR [Suspect]
     Indication: BLOOD CHOLESTEROL INCREASED
     Dosage: 40 MG, 1X/DAY
     Route: 048
  6. METOPROLOL [Concomitant]
     Dosage: 50 MG, 2X/DAY
  7. LOVAZA [Concomitant]
     Dosage: UNK

REACTIONS (3)
  - THROMBOSIS [None]
  - MUSCULOSKELETAL DISORDER [None]
  - PAIN [None]
